FAERS Safety Report 14675525 (Version 1)
Quarter: 2018Q1

REPORT INFORMATION
  Report Type: Spontaneous
  Country: CA (occurrence: CA)
  Receive Date: 20180323
  Receipt Date: 20180323
  Transmission Date: 20180509
  Serious: Yes (Life-Threatening, Other)
  Sender: FDA-Public Use
  Company Number: CA-BAYER-2018-051927

PATIENT
  Age: 23 Year
  Sex: Female
  Weight: 77 kg

DRUGS (2)
  1. MIRENA [Suspect]
     Active Substance: LEVONORGESTREL
     Indication: CONTRACEPTION
     Dosage: 20 MCG/24HR, CONT
     Route: 015
  2. VYVANSE [Concomitant]
     Active Substance: LISDEXAMFETAMINE DIMESYLATE

REACTIONS (12)
  - Mood swings [Unknown]
  - Anxiety [Unknown]
  - Migraine [Unknown]
  - Arthralgia [Unknown]
  - Depression [Unknown]
  - Fibromyalgia [Unknown]
  - Inhibitory drug interaction [Unknown]
  - Amnesia [Unknown]
  - Loss of libido [Unknown]
  - Suicidal ideation [Unknown]
  - Quality of life decreased [Unknown]
  - Myalgia [Unknown]
